FAERS Safety Report 7468175-8 (Version None)
Quarter: 2011Q2

REPORT INFORMATION
  Report Type: 
  Country: None (occurrence: None)
  Receive Date: 20110509
  Receipt Date: 20110419
  Transmission Date: 20111010
  Serious: Yes (Other)
  Sender: FDA-Public Use
  Company Number: US-ALEXION-A201100081

PATIENT
  Sex: Male

DRUGS (2)
  1. SOLIRIS [Suspect]
     Indication: PAROXYSMAL NOCTURNAL HAEMOGLOBINURIA
     Dosage: 900 MG, Q2W
     Route: 042
     Dates: start: 20070521
  2. COUMADIN [Concomitant]
     Dosage: ADJUSTED Q2W
     Route: 048

REACTIONS (2)
  - NEPHROLITHIASIS [None]
  - INTERNATIONAL NORMALISED RATIO ABNORMAL [None]
